FAERS Safety Report 21851937 (Version 1)
Quarter: 2023Q1

REPORT INFORMATION
  Report Type: Spontaneous
  Country: AT (occurrence: AT)
  Receive Date: 20230112
  Receipt Date: 20230112
  Transmission Date: 20230418
  Serious: Yes (Other)
  Sender: FDA-Public Use
  Company Number: AT-JNJFOC-20221243470

PATIENT
  Age: 85 Year
  Sex: Male

DRUGS (18)
  1. LORAZEPAM [Suspect]
     Active Substance: LORAZEPAM
     Dosage: 1 MG
     Dates: start: 20220901
  2. CANDESARTAN [Suspect]
     Active Substance: CANDESARTAN
     Dosage: 8 MG
     Dates: start: 20220928
  3. SERTRALINE [Suspect]
     Active Substance: SERTRALINE HYDROCHLORIDE
     Dosage: 50 MG
  4. VITAMINS WITH MINERALS [Suspect]
     Active Substance: MINERALS\VITAMINS
     Dosage: UNK, (600 MG CA AND 400 IE MG D3)
  5. HALDOL [Suspect]
     Active Substance: HALOPERIDOL
     Indication: Major depression
     Dosage: 2 MG
     Dates: start: 20220920, end: 20220926
  6. MIRTAZAPINE [Suspect]
     Active Substance: MIRTAZAPINE
     Dosage: 50 MG
  7. NITRAZEPAM [Suspect]
     Active Substance: NITRAZEPAM
     Dosage: 3.75 MG
     Dates: start: 20220913, end: 20220926
  8. RISPERDAL [Suspect]
     Active Substance: RISPERIDONE
     Indication: Major depression
     Dosage: 0.25 MG, 2X/DAY, (1-0-1-0)
     Route: 048
     Dates: start: 20211117, end: 20211214
  9. RISPERDAL [Suspect]
     Active Substance: RISPERIDONE
     Dosage: 0.25 MG, 2X/DAY, (1-0-0-1)
     Route: 048
     Dates: start: 20201130, end: 20210119
  10. RISPERDAL [Suspect]
     Active Substance: RISPERIDONE
     Dosage: 1 MG
     Route: 048
     Dates: start: 20220903, end: 20220916
  11. RISPERDAL [Suspect]
     Active Substance: RISPERIDONE
     Dosage: 2 MG
     Route: 048
     Dates: start: 20220831
  12. SEROQUEL [Concomitant]
     Active Substance: QUETIAPINE FUMARATE
     Dosage: 50 MG
     Dates: start: 20220926, end: 20220927
  13. CEFUROXIME [Concomitant]
     Active Substance: CEFUROXIME
     Dosage: 250 MG
     Dates: start: 20220913, end: 20220919
  14. ERLEADA [Concomitant]
     Active Substance: APALUTAMIDE
     Dosage: 60 MG
  15. NOVALGIN (METAMIZOLE SODIUM) [Concomitant]
     Active Substance: METAMIZOLE SODIUM
     Dosage: 1500 MG
     Dates: start: 20220924, end: 20220925
  16. RINGER LACTATED [Concomitant]
     Dosage: 500 ML
     Dates: start: 20220901, end: 20220929
  17. TRENANTONE [Concomitant]
     Active Substance: LEUPROLIDE ACETATE
     Dosage: 1 DF, EVERY 3 MONTHS
     Route: 058
     Dates: start: 202207
  18. TRENANTONE [Concomitant]
     Active Substance: LEUPROLIDE ACETATE
     Dosage: 1 DF, EVERY 3 MONTHS
     Route: 058
     Dates: start: 202210

REACTIONS (1)
  - Leukopenia [Recovering/Resolving]

NARRATIVE: CASE EVENT DATE: 20210127
